FAERS Safety Report 8735521 (Version 2)
Quarter: 2012Q4

REPORT INFORMATION
  Report Type: 
  Country: AU (occurrence: AU)
  Receive Date: 20120822
  Receipt Date: 20120925
  Transmission Date: 20130627
  Serious: Yes (Hospitalization)
  Sender: FDA-Public Use
  Company Number: PHHY2012AU071128

PATIENT
  Age: 24 Year
  Sex: Male
  Weight: 65 kg

DRUGS (6)
  1. CLOZARIL [Suspect]
     Indication: SCHIZOPHRENIA
     Dosage: 250 mg
     Route: 048
     Dates: start: 20110801
  2. CLOZARIL [Suspect]
     Dosage: 100 mg per day
     Route: 048
     Dates: start: 20120704
  3. CLOZARIL [Suspect]
     Dates: start: 20120705
  4. ESOMEPRAZOLE [Concomitant]
     Dosage: 20 mg, mane
     Route: 048
     Dates: start: 20120706
  5. OLANZAPINE [Concomitant]
     Dosage: 10 mg, twice daily
     Route: 048
     Dates: start: 20120803
  6. VITAMIN D3 [Concomitant]
     Dosage: 25 ug, QD
     Route: 048
     Dates: start: 20120706

REACTIONS (6)
  - Troponin increased [Not Recovered/Not Resolved]
  - Delusion [Recovering/Resolving]
  - Psychotic disorder [Recovering/Resolving]
  - Malaise [Recovering/Resolving]
  - Sedation [Recovering/Resolving]
  - Neutrophil count decreased [Recovered/Resolved]
